FAERS Safety Report 4503145-0 (Version None)
Quarter: 2004Q4

REPORT INFORMATION
  Report Type: 
  Country: None (occurrence: None)
  Receive Date: 20041117
  Receipt Date: 20040825
  Transmission Date: 20050328
  Serious: Yes (Hospitalization, Other)
  Sender: FDA-Public Use
  Company Number: JP-BRISTOL-MYERS SQUIBB COMPANY-12687547

PATIENT
  Age: 64 Year
  Sex: Male

DRUGS (3)
  1. MITOMYCIN [Suspect]
     Indication: HEPATIC CANCER METASTATIC
     Route: 013
     Dates: start: 20030812, end: 20040310
  2. 5-FU [Suspect]
     Indication: METASTASES TO LIVER
     Route: 013
     Dates: start: 20030812, end: 20040310
  3. FARMORUBICIN [Suspect]
     Indication: METASTASES TO LIVER
     Route: 013
     Dates: start: 20030812, end: 20040310

REACTIONS (1)
  - AORTIC DISSECTION [None]
